FAERS Safety Report 10831837 (Version 1)
Quarter: 2015Q1

REPORT INFORMATION
  Report Type: Spontaneous
  Country: US (occurrence: US)
  Receive Date: 20150219
  Receipt Date: 20150219
  Transmission Date: 20150721
  Serious: No
  Sender: FDA-Public Use
  Company Number: US-RECKITT BENCKISER PHARMACEUTICAL, INC-RB-73344-2014

PATIENT
  Sex: Male

DRUGS (7)
  1. SUBOXONE [Suspect]
     Active Substance: BUPRENORPHINE HYDROCHLORIDE\NALOXONE HYDROCHLORIDE
     Indication: PAIN
     Dosage: 28 MG, DAILY
     Route: 060
     Dates: start: 2003
  2. KLONAZEPAM [Concomitant]
     Indication: EPILEPSY
     Dosage: UNK
     Route: 065
  3. BUPRENORPHINE [Suspect]
     Active Substance: BUPRENORPHINE
     Indication: PAIN
     Dosage: DAILY
     Route: 060
     Dates: end: 2013
  4. KEPPRA [Concomitant]
     Active Substance: LEVETIRACETAM
     Indication: EPILEPSY
     Dosage: UNK, DAILY
     Route: 048
  5. ALPRAZOLAM. [Concomitant]
     Active Substance: ALPRAZOLAM
     Indication: ANXIETY
     Dosage: UNK
     Route: 065
  6. SUBOXONE [Suspect]
     Active Substance: BUPRENORPHINE HYDROCHLORIDE\NALOXONE HYDROCHLORIDE
     Indication: PAIN
     Dosage: 28 MG, DAILY
     Route: 060
  7. BUPRENORPHINE [Suspect]
     Active Substance: BUPRENORPHINE
     Dosage: VARIOUS DOSES
     Route: 060
     Dates: start: 2013

REACTIONS (6)
  - Intentional product misuse [Unknown]
  - Substance abuse [Not Recovered/Not Resolved]
  - Drug withdrawal syndrome [Recovered/Resolved]
  - Wrong technique in drug usage process [Not Recovered/Not Resolved]
  - Intentional underdose [Unknown]
  - Off label use [Not Recovered/Not Resolved]

NARRATIVE: CASE EVENT DATE: 2003
